FAERS Safety Report 13564897 (Version 2)
Quarter: 2017Q3

REPORT INFORMATION
  Report Type: Report from Study
  Country: None (occurrence: US)
  Receive Date: 20170519
  Receipt Date: 20170825
  Transmission Date: 20171127
  Serious: Yes (Other)
  Sender: FDA-Public Use
  Company Number: US-ABBVIE-17P-163-1975716-00

PATIENT
  Age: 73 Year
  Sex: Male

DRUGS (15)
  1. VENCLEXTA [Suspect]
     Active Substance: VENETOCLAX
     Route: 048
     Dates: start: 20170131, end: 20170131
  2. VENCLEXTA [Suspect]
     Active Substance: VENETOCLAX
     Route: 048
     Dates: start: 20170201, end: 20170226
  3. VENCLEXTA [Suspect]
     Active Substance: VENETOCLAX
     Route: 048
     Dates: start: 20170303
  4. ALLOPURINOL. [Concomitant]
     Active Substance: ALLOPURINOL
     Indication: BLOOD URIC ACID
     Route: 048
     Dates: start: 201701
  5. OMEPRAZOLE. [Concomitant]
     Active Substance: OMEPRAZOLE
     Indication: COUGH
     Route: 048
     Dates: start: 201702
  6. PREDNISONE. [Concomitant]
     Active Substance: PREDNISONE
     Indication: ARTHRITIS
     Route: 048
  7. SIMVASTATIN. [Concomitant]
     Active Substance: SIMVASTATIN
     Indication: BLOOD CHOLESTEROL
     Route: 048
  8. CEFPODOXIME [Concomitant]
     Active Substance: CEFPODOXIME
     Indication: ANTIBIOTIC THERAPY
     Route: 048
     Dates: start: 201701
  9. OMEPRAZOLE. [Concomitant]
     Active Substance: OMEPRAZOLE
     Indication: GASTROOESOPHAGEAL REFLUX DISEASE
  10. VENCLEXTA [Suspect]
     Active Substance: VENETOCLAX
     Indication: ACUTE MYELOID LEUKAEMIA
     Route: 048
     Dates: start: 20170130, end: 20170130
  11. ACYCLOVIR. [Concomitant]
     Active Substance: ACYCLOVIR
     Indication: ANTIBIOTIC THERAPY
     Route: 048
     Dates: start: 20170130
  12. MYCAFUNGIN [Concomitant]
     Indication: INFECTION PROPHYLAXIS
     Dosage: QMWF
     Route: 042
     Dates: start: 201701
  13. VENCLEXTA [Suspect]
     Active Substance: VENETOCLAX
     Route: 048
     Dates: start: 20170417, end: 20170505
  14. STOOL SOFTENER (DOCUSATE) [Concomitant]
     Active Substance: DOCUSATE
     Indication: CONSTIPATION PROPHYLAXIS
     Route: 048
     Dates: start: 20170130
  15. SOTALOL. [Concomitant]
     Active Substance: SOTALOL
     Indication: ATRIAL FIBRILLATION
     Route: 048

REACTIONS (7)
  - Blood test abnormal [Recovered/Resolved]
  - Off label use [Unknown]
  - Memory impairment [Recovered/Resolved]
  - Decreased appetite [Recovered/Resolved]
  - Thinking abnormal [Recovered/Resolved]
  - Drug dose omission [Recovered/Resolved]
  - White blood cell count decreased [Unknown]

NARRATIVE: CASE EVENT DATE: 20170130
